FAERS Safety Report 5775073-4 (Version None)
Quarter: 2008Q2

REPORT INFORMATION
  Report Type: 
  Country: None (occurrence: None)
  Receive Date: 20080617
  Receipt Date: 20080610
  Transmission Date: 20081010
  Serious: Yes (Life-Threatening, Other)
  Sender: FDA-Public Use
  Company Number: US-JNJFOC-20080401967

PATIENT
  Sex: Male
  Weight: 45.36 kg

DRUGS (9)
  1. REOPRO [Suspect]
     Dosage: 21 ML/HR
  2. REOPRO [Suspect]
     Indication: ACUTE MYOCARDIAL INFARCTION
  3. IV CONTRAST [Suspect]
     Indication: ACUTE MYOCARDIAL INFARCTION
  4. ASPIRIN [Concomitant]
  5. FENTANYL [Concomitant]
  6. LOPRESSOR [Concomitant]
  7. HEPARIN [Concomitant]
     Indication: ACUTE MYOCARDIAL INFARCTION
  8. VERSED [Concomitant]
     Indication: SEDATION
  9. METOPROLOL [Concomitant]
     Indication: TACHYCARDIA

REACTIONS (4)
  - AGITATION [None]
  - HYPERSENSITIVITY [None]
  - HYPOTENSION [None]
  - TACHYCARDIA [None]
